FAERS Safety Report 10368041 (Version 2)
Quarter: 2014Q3

REPORT INFORMATION
  Report Type: Spontaneous
  Country: FR (occurrence: FR)
  Receive Date: 20140807
  Receipt Date: 20140822
  Transmission Date: 20150326
  Serious: Yes (Life-Threatening, Hospitalization)
  Sender: FDA-Public Use
  Company Number: FR-TEVA-500113ISR

PATIENT
  Age: 41 Year
  Sex: Female

DRUGS (3)
  1. PRAZEPAM [Concomitant]
     Active Substance: PRAZEPAM
     Route: 065
  2. ETIFOXINE [Concomitant]
     Active Substance: ETIFOXINE
     Route: 065
  3. CLOMIPRAMINE [Suspect]
     Active Substance: CLOMIPRAMINE
     Indication: INTENTIONAL OVERDOSE
     Dosage: UNKNOWN QUANTITY OF 75MG TABLET
     Route: 048

REACTIONS (7)
  - Anticholinergic syndrome [Unknown]
  - Toxicity to various agents [Recovered/Resolved]
  - Overdose [Recovered/Resolved]
  - Haemodynamic instability [Recovered/Resolved]
  - Conduction disorder [Recovered/Resolved]
  - Bezoar [Recovered/Resolved]
  - Gastric ulcer [Unknown]
